FAERS Safety Report 4946961-3 (Version None)
Quarter: 2006Q1

REPORT INFORMATION
  Report Type: 
  Country: None (occurrence: None)
  Receive Date: 20060317
  Receipt Date: 20060213
  Transmission Date: 20060701
  Serious: Yes (Other)
  Sender: FDA-Public Use
  Company Number: JP-ROCHE-436628

PATIENT
  Age: 45 Year
  Sex: Female
  Weight: 48 kg

DRUGS (5)
  1. TAMIFLU [Suspect]
     Route: 048
     Dates: start: 20060206, end: 20060208
  2. TAMIFLU [Suspect]
     Route: 048
     Dates: start: 20060209, end: 20060209
  3. MUCOSOLVAN [Concomitant]
     Route: 048
     Dates: start: 20060206, end: 20060209
  4. MEDICON [Concomitant]
     Route: 048
     Dates: start: 20060206, end: 20060209
  5. ALESION [Concomitant]
     Route: 048
     Dates: start: 20060206, end: 20060209

REACTIONS (1)
  - LOSS OF CONSCIOUSNESS [None]
